FAERS Safety Report 7773849-5 (Version None)
Quarter: 2011Q3

REPORT INFORMATION
  Report Type: 
  Country: None (occurrence: None)
  Receive Date: 20110923
  Receipt Date: 20110913
  Transmission Date: 20111222
  Serious: Yes (Other)
  Sender: FDA-Public Use
  Company Number: FR-JNJFOC-20110904209

PATIENT
  Sex: Male

DRUGS (1)
  1. TOPIRAMATE [Suspect]
     Indication: ABNORMAL BEHAVIOUR
     Route: 048

REACTIONS (4)
  - EPISTAXIS [None]
  - OFF LABEL USE [None]
  - EAR PAIN [None]
  - EAR HAEMORRHAGE [None]
